FAERS Safety Report 8493123-1 (Version None)
Quarter: 2012Q3

REPORT INFORMATION
  Report Type: 
  Country: None (occurrence: None)
  Receive Date: 20120706
  Receipt Date: 20120627
  Transmission Date: 20120928
  Serious: Yes (Hospitalization)
  Sender: FDA-Public Use
  Company Number: US-ACTELION-A-US2008-19175

PATIENT

DRUGS (1)
  1. TRACLEER [Suspect]
     Indication: PULMONARY ARTERIAL HYPERTENSION
     Route: 048
     Dates: start: 20050715

REACTIONS (5)
  - DEHYDRATION [None]
  - URINARY TRACT INFECTION [None]
  - BACK PAIN [None]
  - DYSPNOEA [None]
  - BACK DISORDER [None]
